FAERS Safety Report 9720570 (Version 2)
Quarter: 2013Q4

REPORT INFORMATION
  Report Type: Report from Study
  Country: FR (occurrence: FR)
  Receive Date: 20131129
  Receipt Date: 20131129
  Transmission Date: 20140711
  Serious: Yes (Hospitalization)
  Sender: FDA-Public Use
  Company Number: FR-ROCHE-1300351

PATIENT
  Age: 56 Year
  Sex: Female

DRUGS (7)
  1. ZELBORAF [Suspect]
     Indication: MALIGNANT MELANOMA
     Route: 048
     Dates: start: 201307
  2. ZELBORAF [Suspect]
     Indication: METASTATIC MALIGNANT MELANOMA
     Route: 048
     Dates: start: 201309
  3. SKENAN [Concomitant]
     Indication: PAIN
     Route: 048
     Dates: start: 20130803, end: 20130831
  4. TOPALGIC (FRANCE) [Concomitant]
     Indication: PAIN
     Route: 065
     Dates: start: 20130729, end: 20130803
  5. VOGALENE [Concomitant]
     Indication: NAUSEA
     Route: 048
     Dates: start: 20130722
  6. AERIUS [Concomitant]
     Indication: PRURITUS
     Route: 048
     Dates: start: 20130722
  7. TEMERIT [Concomitant]
     Indication: HYPERTENSION
     Route: 048

REACTIONS (1)
  - Thermal burn [Recovered/Resolved]
